FAERS Safety Report 24052188 (Version 1)
Quarter: 2024Q3

REPORT INFORMATION
  Report Type: Spontaneous
  Country: CN (occurrence: CN)
  Receive Date: 20240704
  Receipt Date: 20240704
  Transmission Date: 20241016
  Serious: Yes (Other)
  Sender: HISUN PHARMACEUTICALS
  Company Number: CN-Hisun Pharmaceuticals-2158847

PATIENT
  Age: 56 Year
  Sex: Male
  Weight: 78 kg

DRUGS (1)
  1. CLADRIBINE [Suspect]
     Active Substance: CLADRIBINE
     Indication: Langerhans^ cell histiocytosis
     Route: 042
     Dates: start: 20240514, end: 20240518

REACTIONS (2)
  - Myelosuppression [Recovering/Resolving]
  - Product use in unapproved indication [Unknown]

NARRATIVE: CASE EVENT DATE: 20240514
